FAERS Safety Report 10481962 (Version 3)
Quarter: 2014Q4

REPORT INFORMATION
  Report Type: Spontaneous
  Country: US (occurrence: US)
  Receive Date: 20140929
  Receipt Date: 20141007
  Transmission Date: 20150528
  Serious: Yes (Other)
  Sender: FDA-Public Use
  Company Number: US-PFIZER INC-2014264493

PATIENT
  Age: 72 Year
  Sex: Female
  Weight: 79.37 kg

DRUGS (5)
  1. ATENOLOL. [Concomitant]
     Active Substance: ATENOLOL
     Dosage: UNK
  2. ASPIRIN. [Concomitant]
     Active Substance: ASPIRIN
     Dosage: UNK
  3. SUTENT [Suspect]
     Active Substance: SUNITINIB MALATE
     Indication: RENAL DISORDER
     Dosage: 300 MG, DAILY
     Dates: start: 20140808
  4. SUTENT [Suspect]
     Active Substance: SUNITINIB MALATE
     Dosage: 200 MG, UNK
     Dates: start: 20140824
  5. SUTENT [Suspect]
     Active Substance: SUNITINIB MALATE
     Dosage: 200 MG, 1X/DAY

REACTIONS (5)
  - Aspartate aminotransferase increased [Unknown]
  - Diarrhoea [Unknown]
  - Alanine aminotransferase increased [Unknown]
  - Rash [Unknown]
  - Product use issue [Unknown]

NARRATIVE: CASE EVENT DATE: 2014
